FAERS Safety Report 23002356 (Version 10)
Quarter: 2025Q4

REPORT INFORMATION
  Report Type: Spontaneous
  Country: JP (occurrence: JP)
  Receive Date: 20230928
  Receipt Date: 20251216
  Transmission Date: 20260117
  Serious: Yes (Hospitalization)
  Sender: KYOWA
  Company Number: JP-KYOWAKIRIN-2023KK015090

PATIENT

DRUGS (14)
  1. CRYSVITA [Suspect]
     Active Substance: BUROSUMAB-TWZA
     Indication: Hereditary hypophosphataemic rickets
     Dosage: 70 MG, (ONE DOSE)
     Route: 058
     Dates: start: 20230920, end: 20230920
  2. CRYSVITA [Suspect]
     Active Substance: BUROSUMAB-TWZA
     Dosage: 20 MG
     Route: 058
     Dates: start: 20231129, end: 20231129
  3. EVOCALCET [Suspect]
     Active Substance: EVOCALCET
     Indication: Hypercalcaemia
     Dosage: 2 MG
     Route: 048
     Dates: start: 20230929, end: 20231001
  4. EVOCALCET [Suspect]
     Active Substance: EVOCALCET
     Dosage: 4 MG
     Route: 048
     Dates: start: 20231002, end: 20231010
  5. EVOCALCET [Suspect]
     Active Substance: EVOCALCET
     Dosage: 6 MG
     Route: 048
     Dates: start: 20231011, end: 20231017
  6. EVOCALCET [Suspect]
     Active Substance: EVOCALCET
     Dosage: 8 MG
     Route: 048
     Dates: start: 20231018, end: 20231114
  7. EVOCALCET [Suspect]
     Active Substance: EVOCALCET
     Dosage: 10 MG
     Route: 048
     Dates: start: 20231115, end: 20231226
  8. EVOCALCET [Suspect]
     Active Substance: EVOCALCET
     Dosage: 12 MG
     Route: 048
     Dates: start: 20231227
  9. EVOCALCET [Suspect]
     Active Substance: EVOCALCET
     Dosage: AFTER 140 DAYS OF ADMINISTRATION, NORMAL WITH A GRADUAL DOSE INCREASE
     Route: 048
  10. EVOCALCET [Suspect]
     Active Substance: EVOCALCET
     Dosage: AFTER 246 DAYS OF ADMINISTRATION, DISCONTINUED
     Route: 048
  11. ALLOPURINOL [Concomitant]
     Active Substance: ALLOPURINOL
     Indication: Hyperuricaemia
     Dosage: 100 MG/DAY
     Route: 065
  12. AZILSARTAN KAMEDOXOMIL [Concomitant]
     Active Substance: AZILSARTAN KAMEDOXOMIL
     Indication: Hypertension
     Dosage: 20 MG
     Route: 065
  13. AMLODIPINE BESYLATE [Concomitant]
     Active Substance: AMLODIPINE BESYLATE
     Indication: Hypertension
     Dosage: 5 MG
     Route: 065
  14. TELMISARTAN [Concomitant]
     Active Substance: TELMISARTAN
     Indication: Product used for unknown indication
     Dosage: 40 MG/DAY
     Route: 065

REACTIONS (5)
  - Hypercalcaemia [Recovered/Resolved]
  - Hypercalcaemia [Unknown]
  - Hypocalcaemia [Unknown]
  - Off label use [Unknown]
  - Underdose [Unknown]

NARRATIVE: CASE EVENT DATE: 20230926
